FAERS Safety Report 19063882 (Version 13)
Quarter: 2022Q2

REPORT INFORMATION
  Report Type: Report from Study
  Country: US (occurrence: None)
  Receive Date: 20210326
  Receipt Date: 20220612
  Transmission Date: 20220721
  Serious: Yes (Life-Threatening, Hospitalization)
  Sender: FDA-Public Use
  Company Number: US-ROCHE-2792564

PATIENT
  Age: 60 Year
  Sex: Male
  Weight: 99 kg

DRUGS (36)
  1. OCRELIZUMAB [Suspect]
     Active Substance: OCRELIZUMAB
     Indication: Primary progressive multiple sclerosis
     Dosage: START DATE OF MOST RECENT DOSE 600 MG OF STUDY DRUG PRIOR TO ADVERSE EVENT WAS 29/DEC/2020
     Route: 042
     Dates: start: 20190812
  2. PANTOPRAZOLE [Concomitant]
     Active Substance: PANTOPRAZOLE
     Indication: Gastrooesophageal reflux disease
     Route: 048
     Dates: start: 2009, end: 202103
  3. PANTOPRAZOLE [Concomitant]
     Active Substance: PANTOPRAZOLE
     Route: 048
     Dates: start: 20210318, end: 20210702
  4. VITAMIN D3 [Concomitant]
     Active Substance: CHOLECALCIFEROL
     Indication: Vitamin D deficiency
     Dosage: DOSE: 500 U
     Route: 048
     Dates: start: 2011
  5. VITAMIN C [Concomitant]
     Active Substance: ASCORBIC ACID
     Route: 048
     Dates: start: 2015, end: 20210915
  6. CYANOCOBALAMIN\DEXPANTHENOL\NIACINAMIDE\PYRIDOXINE HYDROCHLORIDE\RIBOF [Concomitant]
     Active Substance: CYANOCOBALAMIN\DEXPANTHENOL\NIACINAMIDE\PYRIDOXINE HYDROCHLORIDE\RIBOFLAVIN 5^-PHOSPHATE SODIUM\THIA
     Dosage: DOSE: 1 TABLET
     Route: 048
     Dates: start: 2015
  7. PRASTERONE [Concomitant]
     Active Substance: PRASTERONE
     Route: 048
     Dates: start: 2016
  8. HERBALS\SAW PALMETTO [Concomitant]
     Active Substance: HERBALS\SAW PALMETTO
     Route: 048
     Dates: start: 2016
  9. OMEGA-3 FATTY ACIDS [Concomitant]
     Active Substance: OMEGA-3 FATTY ACIDS
     Dosage: DOSE: 1 CAPSULE
     Route: 048
     Dates: start: 2016
  10. PUMPKIN SEED [Concomitant]
     Active Substance: PUMPKIN SEED
     Route: 048
     Dates: start: 2018
  11. CYCLOBENZAPRINE [Concomitant]
     Active Substance: CYCLOBENZAPRINE
     Indication: Spinal pain
     Route: 048
     Dates: start: 2018, end: 20210318
  12. CYCLOBENZAPRINE [Concomitant]
     Active Substance: CYCLOBENZAPRINE
     Route: 048
     Dates: start: 20210318
  13. PROVIGIL [Concomitant]
     Active Substance: MODAFINIL
     Indication: Fatigue
     Route: 048
     Dates: start: 2018
  14. VALIUM [Concomitant]
     Active Substance: DIAZEPAM
     Indication: Spinal pain
     Route: 048
     Dates: start: 2018
  15. ROPINIROLE [Concomitant]
     Active Substance: ROPINIROLE
     Indication: Muscle spasms
     Route: 048
     Dates: start: 202007
  16. IVERMECTIN [Concomitant]
     Active Substance: IVERMECTIN
     Route: 048
     Dates: start: 20210210
  17. FLEXERIL [Concomitant]
     Active Substance: CYCLOBENZAPRINE HYDROCHLORIDE
     Indication: Spinal pain
     Route: 048
     Dates: start: 2018
  18. FLEXERIL [Concomitant]
     Active Substance: CYCLOBENZAPRINE HYDROCHLORIDE
     Dosage: BED TIME
     Route: 048
  19. OXYBUTYNIN [Concomitant]
     Active Substance: OXYBUTYNIN
     Route: 048
     Dates: start: 2018, end: 20210210
  20. OMNICEF [Concomitant]
     Active Substance: CEFDINIR
     Indication: Bacterial infection
     Route: 048
     Dates: start: 20210311, end: 20210317
  21. OMNICEF [Concomitant]
     Active Substance: CEFDINIR
     Indication: Urinary tract infection
  22. ACETAMINOPHEN [Concomitant]
     Active Substance: ACETAMINOPHEN
     Indication: Pyrexia
     Route: 054
     Dates: start: 20210303, end: 20210303
  23. ACETAMINOPHEN [Concomitant]
     Active Substance: ACETAMINOPHEN
     Route: 054
     Dates: start: 20210303, end: 20210303
  24. AMPICILLIN [Concomitant]
     Active Substance: AMPICILLIN
     Indication: Urinary tract infection
     Route: 042
     Dates: start: 20210303, end: 20210304
  25. MEROPENEM [Concomitant]
     Active Substance: MEROPENEM
     Indication: Sepsis
     Route: 042
     Dates: start: 20210304, end: 20210306
  26. MEROPENEM [Concomitant]
     Active Substance: MEROPENEM
     Indication: Urosepsis
  27. CLOMID [Concomitant]
     Active Substance: CLOMIPHENE CITRATE
     Dosage: EVERY OTHER DAY
     Route: 048
     Dates: start: 20210318
  28. VESICARE [Concomitant]
     Active Substance: SOLIFENACIN SUCCINATE
     Indication: Hypertonic bladder
     Route: 048
     Dates: start: 20210318
  29. SODIUM CHLORIDE [Concomitant]
     Active Substance: SODIUM CHLORIDE
     Dosage: Q 13 H 20 M IV
     Route: 042
  30. ISOVUE 370 [Concomitant]
     Active Substance: IOPAMIDOL
     Route: 042
     Dates: start: 20210303
  31. IODINE [Concomitant]
     Active Substance: IODINE
     Dates: start: 20210303
  32. DEXTROSE\SODIUM CHLORIDE [Concomitant]
     Active Substance: DEXTROSE\SODIUM CHLORIDE
     Dosage: Q 13 H 20 M IV
     Dates: start: 20210303
  33. POTASSIUM CHLORIDE\SODIUM CHLORIDE [Concomitant]
     Active Substance: POTASSIUM CHLORIDE\SODIUM CHLORIDE
     Dates: start: 20210303
  34. VANCOMYCIN [Concomitant]
     Active Substance: VANCOMYCIN
  35. NEURONTIN [Concomitant]
     Active Substance: GABAPENTIN
     Route: 048
  36. GABAPENTIN [Concomitant]
     Active Substance: GABAPENTIN
     Indication: Pain
     Route: 048
     Dates: start: 20210318, end: 20210915

REACTIONS (2)
  - Urosepsis [Recovered/Resolved]
  - Seizure [Recovered/Resolved]

NARRATIVE: CASE EVENT DATE: 20210303
